FAERS Safety Report 8595112-5 (Version None)
Quarter: 2012Q3

REPORT INFORMATION
  Report Type: 
  Country: None (occurrence: None)
  Receive Date: 20120815
  Receipt Date: 20120809
  Transmission Date: 20120928
  Serious: No
  Sender: FDA-Public Use
  Company Number: US-B.I. PHARMACEUTICALS,INC./RIDGEFIELD-2012-BP-18846BP

PATIENT
  Sex: Female

DRUGS (3)
  1. PROAIR HFA [Concomitant]
     Indication: ASTHMA
     Route: 055
  2. SYMBICORT [Concomitant]
     Indication: ASTHMA
     Route: 055
  3. SPIRIVA [Suspect]
     Indication: ASTHMA
     Dosage: 18 MCG
     Route: 055
     Dates: start: 20120701, end: 20120701

REACTIONS (2)
  - BLOODY DISCHARGE [None]
  - OROPHARYNGEAL PAIN [None]
